FAERS Safety Report 4392027-3 (Version None)
Quarter: 2004Q3

REPORT INFORMATION
  Report Type: 
  Country: None (occurrence: None)
  Receive Date: 20040708
  Receipt Date: 20021112
  Transmission Date: 20050211
  Serious: Yes (Hospitalization, Other)
  Sender: FDA-Public Use
  Company Number: PHBS2002JP14044

PATIENT
  Age: 32 Year
  Sex: Female
  Weight: 50 kg

DRUGS (9)
  1. GLEEVEC [Suspect]
     Indication: BLAST CRISIS IN MYELOGENOUS LEUKAEMIA
     Dosage: 200 MG, TID
     Route: 048
     Dates: start: 20020827, end: 20020906
  2. GLEEVEC [Suspect]
     Dosage: 600 MG/D
     Route: 048
     Dates: start: 20020913, end: 20021111
  3. INTRON A [Concomitant]
     Dates: start: 20021011, end: 20021111
  4. HYDREA [Concomitant]
     Dates: start: 20021011, end: 20021112
  5. ROFERON-A [Concomitant]
     Dates: start: 20020911, end: 20021009
  6. CORTRIL [Concomitant]
     Dosage: 20 MG/D
     Route: 048
     Dates: start: 20020827
  7. NEORAL [Suspect]
     Indication: STEM CELL TRANSPLANT
     Dosage: 6 MG/KG
     Route: 065
     Dates: start: 20020601
  8. VINCRISTINE [Concomitant]
  9. PREDNISOLONE [Concomitant]

REACTIONS (5)
  - FACE OEDEMA [None]
  - GENERALISED OEDEMA [None]
  - MACULAR OEDEMA [None]
  - VISION BLURRED [None]
  - VISUAL ACUITY REDUCED [None]
